FAERS Safety Report 5926257-3 (Version None)
Quarter: 2008Q4

REPORT INFORMATION
  Report Type: 
  Country: None (occurrence: None)
  Receive Date: 20081022
  Receipt Date: 20081013
  Transmission Date: 20090506
  Serious: Yes (Other)
  Sender: FDA-Public Use
  Company Number: GB-JNJFOC-20081003551

PATIENT
  Age: 64 Year
  Sex: Female
  Weight: 61 kg

DRUGS (3)
  1. REMICADE [Suspect]
     Indication: RHEUMATOID ARTHRITIS
     Route: 042
  2. METHOTREXATE [Concomitant]
  3. SULFASALAZINE [Concomitant]

REACTIONS (1)
  - MALIGNANT MELANOMA [None]
